FAERS Safety Report 7812083-7 (Version None)
Quarter: 2011Q4

REPORT INFORMATION
  Report Type: 
  Country: None (occurrence: None)
  Receive Date: 20111011
  Receipt Date: 20110927
  Transmission Date: 20120403
  Serious: Yes (Life-Threatening)
  Sender: FDA-Public Use
  Company Number: LEO-2011-00656

PATIENT
  Sex: Female

DRUGS (2)
  1. INNOHEP [Suspect]
     Indication: ANTICOAGULANT THERAPY
     Dosage: SUBCUTANEOUS
     Route: 058
  2. WARFARIN SODIUM [Suspect]
     Indication: ATRIAL FIBRILLATION

REACTIONS (3)
  - DRUG INEFFECTIVE [None]
  - ARTERIAL THROMBOSIS LIMB [None]
  - PERIPHERAL ISCHAEMIA [None]
